FAERS Safety Report 23739291 (Version 2)
Quarter: 2024Q2

REPORT INFORMATION
  Report Type: Report from Study
  Country: BR (occurrence: BR)
  Receive Date: 20240413
  Receipt Date: 20240626
  Transmission Date: 20240716
  Serious: Yes (Other)
  Sender: FDA-Public Use
  Company Number: BR-TAKEDA-2024TUS034283

PATIENT
  Sex: Male

DRUGS (1)
  1. VEDOLIZUMAB [Suspect]
     Active Substance: VEDOLIZUMAB
     Indication: Colitis ulcerative
     Dosage: UNK
     Route: 042
     Dates: start: 2023

REACTIONS (9)
  - Colitis ulcerative [Recovering/Resolving]
  - Inappropriate schedule of product administration [Recovering/Resolving]
  - Diarrhoea [Recovering/Resolving]
  - Malaise [Recovering/Resolving]
  - Drug ineffective [Recovered/Resolved]
  - Flatulence [Recovering/Resolving]
  - Acne [Recovered/Resolved]
  - Haemorrhoids [Recovered/Resolved]
  - Arthralgia [Recovered/Resolved]
